FAERS Safety Report 19436545 (Version 3)
Quarter: 2021Q3

REPORT INFORMATION
  Report Type: Spontaneous
  Country: RU (occurrence: RU)
  Receive Date: 20210618
  Receipt Date: 20210809
  Transmission Date: 20211014
  Serious: Yes (Other)
  Sender: FDA-Public Use
  Company Number: RU-BAYER-2021-157140

PATIENT
  Age: 33 Year
  Sex: Female

DRUGS (1)
  1. YARINA [Suspect]
     Active Substance: DROSPIRENONE\ETHINYL ESTRADIOL
     Indication: CONTRACEPTION
     Dosage: UNK
     Route: 048
     Dates: start: 2006, end: 202105

REACTIONS (5)
  - Ovarian cyst [None]
  - Hypothyroidism [None]
  - Ovarian cancer [None]
  - Ovarian neoplasm [None]
  - Chronic sinusitis [None]

NARRATIVE: CASE EVENT DATE: 2019
